FAERS Safety Report 7266634-4 (Version None)
Quarter: 2011Q1

REPORT INFORMATION
  Report Type: 
  Country: None (occurrence: None)
  Receive Date: 20110131
  Receipt Date: 20110118
  Transmission Date: 20110831
  Serious: Yes (Hospitalization)
  Sender: FDA-Public Use
  Company Number: DE-MYLANLABS-2011S1001095

PATIENT
  Age: 76 Year
  Sex: Male
  Weight: 120 kg

DRUGS (24)
  1. CEFUROXIME [Suspect]
     Indication: INFECTION PROPHYLAXIS
     Route: 048
     Dates: start: 20091126, end: 20091202
  2. BERLOSIN [Concomitant]
     Indication: PAIN
     Route: 048
     Dates: start: 20091126, end: 20091207
  3. TORASEMID [Concomitant]
     Indication: HYPERTENSION
     Route: 048
  4. SPIRIVA [Concomitant]
     Indication: CHRONIC OBSTRUCTIVE PULMONARY DISEASE
     Route: 055
  5. ALLOPURINOL [Concomitant]
     Indication: HYPERURICAEMIA
     Route: 048
  6. KONAKION [Concomitant]
     Indication: VITAMIN K DEFICIENCY
     Dosage: DOSIS UNBEKANNT
     Route: 042
     Dates: start: 20091123, end: 20091124
  7. EMBOLEX [Concomitant]
     Route: 058
     Dates: start: 20091124, end: 20091125
  8. BISOPROLOL [Concomitant]
     Indication: HYPERTENSION
     Route: 048
     Dates: end: 20091204
  9. VEROSPIRON [Concomitant]
     Indication: OEDEMA
     Route: 048
  10. PERFALGAN [Concomitant]
     Indication: PAIN
     Dosage: DOSIS UND APPLIKATIONSHAUFIGKEIT SIND UNBEKANNT
     Route: 042
     Dates: start: 20091125, end: 20091202
  11. OMEPRAZOLE [Interacting]
     Indication: PROPHYLAXIS AGAINST GASTROINTESTINAL ULCER
     Route: 048
     Dates: start: 20091126
  12. SIMVASTATIN [Concomitant]
     Indication: HYPERLIPIDAEMIA
     Route: 048
  13. CEFUROXIME [Suspect]
     Route: 042
     Dates: start: 20091125, end: 20091125
  14. VOLTAREN [Concomitant]
     Indication: PAIN
     Route: 048
     Dates: start: 20091126, end: 20091130
  15. SYMBICORT [Concomitant]
     Indication: CHRONIC OBSTRUCTIVE PULMONARY DISEASE
     Dosage: 1 DOSISEINHEIT = 80 ?G BUDERSONID + 4,5 ?G FORMOTEROL
     Route: 055
  16. TAMSULOSIN HCL [Concomitant]
     Indication: BENIGN PROSTATIC HYPERPLASIA
     Route: 048
  17. FALITHROM [Concomitant]
     Indication: THROMBOSIS PROPHYLAXIS
     Dosage: DOSIS UND APPLIKATIONSHAUFIGKEIT SIND UNBEKANNT
     Route: 048
     Dates: start: 20050101, end: 20091117
  18. OXIS TURBOHALER [Concomitant]
     Indication: CHRONIC OBSTRUCTIVE PULMONARY DISEASE
     Route: 055
  19. BLOPRESS [Concomitant]
     Indication: HYPERTENSION
     Dosage: 1 DF= 16MG CANDESARTANCILEXETIL + 12,5MG HYDROCHLOROTHIAZID; DOSIS/APPLIKATION: 1-0-0,5
     Route: 048
     Dates: end: 20091204
  20. OXYGESIC [Concomitant]
     Dosage: DOSIS UNBEKANNT
     Route: 048
     Dates: start: 20091201, end: 20091201
  21. EMBOLEX [Concomitant]
     Indication: THROMBOSIS PROPHYLAXIS
     Route: 058
     Dates: start: 20091126, end: 20091217
  22. CLEXANE [Concomitant]
     Indication: THROMBOSIS PROPHYLAXIS
     Route: 058
     Dates: start: 20091118, end: 20091122
  23. OXYGESIC [Concomitant]
     Indication: PAIN
     Route: 048
     Dates: start: 20091126
  24. ZOFRAN [Concomitant]
     Indication: NAUSEA
     Dosage: DOSIS UNBEKANNT
     Route: 048
     Dates: start: 20091127, end: 20091127

REACTIONS (3)
  - DRUG INTERACTION [None]
  - CHOLELITHIASIS [None]
  - CLOSTRIDIUM DIFFICILE COLITIS [None]
